FAERS Safety Report 10328465 (Version 3)
Quarter: 2014Q4

REPORT INFORMATION
  Report Type: Spontaneous
  Country: JP (occurrence: JP)
  Receive Date: 20140721
  Receipt Date: 20141209
  Transmission Date: 20150528
  Serious: Yes (Death, Hospitalization, Other)
  Sender: FDA-Public Use
  Company Number: JP-PFIZER INC-2014201153

PATIENT
  Age: 75 Year
  Sex: Male

DRUGS (1)
  1. AMLODIN [Suspect]
     Active Substance: AMLODIPINE BESYLATE
     Indication: HYPERTENSION
     Dosage: UNK
     Route: 048

REACTIONS (6)
  - Rash generalised [Fatal]
  - Sepsis [Fatal]
  - Multi-organ failure [Fatal]
  - Death [Fatal]
  - Acute hepatic failure [Fatal]
  - Drug reaction with eosinophilia and systemic symptoms [Fatal]
